FAERS Safety Report 21565414 (Version 1)
Quarter: 2022Q4

REPORT INFORMATION
  Report Type: Spontaneous
  Country: CN (occurrence: CN)
  Receive Date: 20221108
  Receipt Date: 20221108
  Transmission Date: 20230112
  Serious: Yes (Other)
  Sender: FDA-Public Use
  Company Number: CN-JNJFOC-20221059151

PATIENT
  Age: 45 Year
  Sex: Male
  Weight: 64.5 kg

DRUGS (2)
  1. RISPERDAL [Suspect]
     Active Substance: RISPERIDONE
     Indication: Schizophrenia
     Route: 048
     Dates: start: 20220822, end: 20221024
  2. OLANZAPINE [Concomitant]
     Active Substance: OLANZAPINE
     Indication: Schizophrenia
     Route: 048
     Dates: start: 20220822, end: 20221024

REACTIONS (1)
  - Cleft lip [Not Recovered/Not Resolved]

NARRATIVE: CASE EVENT DATE: 20220902
